FAERS Safety Report 21984675 (Version 1)
Quarter: 2023Q1

REPORT INFORMATION
  Report Type: Spontaneous
  Country: US (occurrence: US)
  Receive Date: 20230213
  Receipt Date: 20230213
  Transmission Date: 20230417
  Serious: Yes (Life-Threatening, Hospitalization, Other)
  Sender: FDA-Public Use
  Company Number: US-MLMSERVICE-20230123-4049973-1

PATIENT
  Age: 15 Year
  Sex: Male

DRUGS (2)
  1. IBUPROFEN [Suspect]
     Active Substance: IBUPROFEN
     Dosage: THREE HUNDRED IBUPROFEN 400MG TABLETS
     Route: 048
  2. DIPHENHYDRAMINE HYDROCHLORIDE [Suspect]
     Active Substance: DIPHENHYDRAMINE HYDROCHLORIDE
     Dosage: FOURTEEN BENADRYL 25MG TABLETS
     Route: 048

REACTIONS (12)
  - Hyperkalaemia [Recovering/Resolving]
  - Toxicity to various agents [Recovering/Resolving]
  - Intentional overdose [Recovering/Resolving]
  - Hypocalcaemia [Recovering/Resolving]
  - Acute respiratory distress syndrome [Recovering/Resolving]
  - Metabolic acidosis [Recovering/Resolving]
  - Renal failure [Recovering/Resolving]
  - Pupillary reflex impaired [Recovering/Resolving]
  - Tachycardia [Recovering/Resolving]
  - Lactic acidosis [Recovering/Resolving]
  - Leukopenia [Recovering/Resolving]
  - Hypoxia [Recovering/Resolving]
